FAERS Safety Report 14299230 (Version 1)
Quarter: 2017Q4

REPORT INFORMATION
  Report Type: Spontaneous
  Country: KR (occurrence: KR)
  Receive Date: 20171219
  Receipt Date: 20171219
  Transmission Date: 20180321
  Serious: Yes (Hospitalization, Other)
  Sender: FDA-Public Use
  Company Number: KR-AMGEN-KORSP2017176685

PATIENT
  Age: 74 Year
  Sex: Female

DRUGS (1)
  1. PROLIA [Suspect]
     Active Substance: DENOSUMAB
     Indication: PRODUCT USED FOR UNKNOWN INDICATION
     Dosage: UNK
     Route: 065
     Dates: start: 20171117

REACTIONS (4)
  - Infarction [Unknown]
  - Urticaria [Recovered/Resolved]
  - Hemiplegia [Not Recovered/Not Resolved]
  - Rash generalised [Unknown]

NARRATIVE: CASE EVENT DATE: 2017
